FAERS Safety Report 9034841 (Version 1)
Quarter: 2013Q1

REPORT INFORMATION
  Report Type: Spontaneous
  Country: US (occurrence: None)
  Receive Date: 20130116
  Receipt Date: 20130116
  Transmission Date: 20140127
  Serious: Yes (Hospitalization)
  Sender: FDA-Public Use
  Company Number: None

PATIENT
  Age: 65 Year
  Sex: Male
  Weight: 81.5 kg

DRUGS (2)
  1. INDOMETHACIN [Suspect]
     Indication: PAIN
     Dosage: 25 MG  PRN  PO
     Route: 048
     Dates: start: 20100129, end: 20100713
  2. LISINOPRIL [Suspect]
     Indication: HYPERTENSION
     Dosage: 40 MG  EVERY DAY  PO
     Route: 048
     Dates: start: 20031201, end: 20100713

REACTIONS (10)
  - Renal failure acute [None]
  - Metabolic acidosis [None]
  - Anaemia [None]
  - Dyspepsia [None]
  - Melaena [None]
  - Haematochezia [None]
  - Decreased appetite [None]
  - Haemoptysis [None]
  - Cough [None]
  - Sputum discoloured [None]
